FAERS Safety Report 17972395 (Version 1)
Quarter: 2020Q3

REPORT INFORMATION
  Report Type: Spontaneous
  Country: US (occurrence: US)
  Receive Date: 20200701
  Receipt Date: 20200701
  Transmission Date: 20201103
  Serious: No
  Sender: FDA-Public Use
  Company Number: None

PATIENT
  Age: 55 Year
  Sex: 0
  Weight: 88.45 kg

DRUGS (1)
  1. HEMP EXTRACT [Suspect]
     Active Substance: HEMP
     Route: 048

REACTIONS (5)
  - Blood pressure increased [None]
  - Incoherent [None]
  - Drug screen positive [None]
  - Panic attack [None]
  - Hallucination [None]

NARRATIVE: CASE EVENT DATE: 20200504
